FAERS Safety Report 4996517-1 (Version None)
Quarter: 2006Q2

REPORT INFORMATION
  Report Type: 
  Country: None (occurrence: None)
  Receive Date: 20060509
  Receipt Date: 20060501
  Transmission Date: 20061013
  Serious: Yes (Other)
  Sender: FDA-Public Use
  Company Number: PHEH2006US05670

PATIENT
  Age: 17 Year
  Sex: Male

DRUGS (7)
  1. EXJADE [Suspect]
     Indication: BLOOD IRON INCREASED
     Dosage: 1000 MG, QD
     Route: 048
     Dates: start: 20060406, end: 20060413
  2. NUTROPIN [Concomitant]
  3. CALTRATE [Concomitant]
  4. PENICILLIN [Concomitant]
  5. FOLIC ACID [Concomitant]
  6. VITAMIN C AND E [Concomitant]
  7. PAMIDRONATE DISODIUM [Concomitant]

REACTIONS (6)
  - PHARYNGEAL ERYTHEMA [None]
  - RASH GENERALISED [None]
  - RASH MACULAR [None]
  - SKIN HYPERPIGMENTATION [None]
  - THROAT LESION [None]
  - THROAT TIGHTNESS [None]
